FAERS Safety Report 6013324-1 (Version None)
Quarter: 2008Q4

REPORT INFORMATION
  Report Type: 
  Country: None (occurrence: None)
  Receive Date: 20081219
  Receipt Date: 20081209
  Transmission Date: 20090506
  Serious: Yes (Hospitalization)
  Sender: FDA-Public Use
  Company Number: FR-AMGEN-US323804

PATIENT
  Sex: Male
  Weight: 79 kg

DRUGS (1)
  1. ENBREL [Suspect]
     Indication: ANKYLOSING SPONDYLITIS
     Route: 058
     Dates: start: 20040701, end: 20081001

REACTIONS (3)
  - DYSURIA [None]
  - PROSTATE CANCER [None]
  - URINARY INCONTINENCE [None]
